FAERS Safety Report 23473505 (Version 1)
Quarter: 2024Q1

REPORT INFORMATION
  Report Type: Spontaneous
  Country: US (occurrence: US)
  Receive Date: 20240203
  Receipt Date: 20240203
  Transmission Date: 20240410
  Serious: Yes (Death, Hospitalization)
  Sender: FDA-Public Use
  Company Number: US-STRIDES ARCOLAB LIMITED-2024SP001260

PATIENT
  Age: 5 Decade
  Sex: Male

DRUGS (4)
  1. CALCITRIOL [Suspect]
     Active Substance: CALCITRIOL
     Indication: Hypocalcaemia
     Dosage: 0.5 MILLIGRAM PER DAY
     Route: 065
  2. CHOLECALCIFEROL [Suspect]
     Active Substance: CHOLECALCIFEROL
     Indication: Hypocalcaemia
     Dosage: 6000 INTERNATIONAL UNIT PER DAY
     Route: 065
  3. CALCIUM [Suspect]
     Active Substance: CALCIUM
     Indication: Hypocalcaemia
     Dosage: 14.4 GRAM (ELEMENTAL CALCIUM)
     Route: 048
  4. CALCIUM [Suspect]
     Active Substance: CALCIUM
     Dosage: 1.35 MILLIGRAM/KILOGRAM (1.35 MG/KG/H) (INFUSION)
     Route: 065

REACTIONS (2)
  - Drug ineffective [Fatal]
  - Condition aggravated [Fatal]
